FAERS Safety Report 19493930 (Version 1)
Quarter: 2021Q3

REPORT INFORMATION
  Report Type: Spontaneous
  Country: US (occurrence: US)
  Receive Date: 20210705
  Receipt Date: 20210705
  Transmission Date: 20211014
  Serious: No
  Sender: FDA-Public Use
  Company Number: US-SA-2021SA218414

PATIENT
  Age: 21 Year
  Sex: Male

DRUGS (1)
  1. DUPIXENT [Suspect]
     Active Substance: DUPILUMAB
     Indication: ASTHMA
     Dosage: 300 MG, QOW
     Route: 058
     Dates: start: 202106

REACTIONS (10)
  - Skin swelling [Unknown]
  - Diarrhoea [Unknown]
  - Swelling face [Unknown]
  - Product use issue [Unknown]
  - Pruritus [Unknown]
  - Abdominal distension [Unknown]
  - Asthma [Unknown]
  - Injection site urticaria [Unknown]
  - Injection site erythema [Unknown]
  - Headache [Unknown]

NARRATIVE: CASE EVENT DATE: 202106
